FAERS Safety Report 16550788 (Version 2)
Quarter: 2019Q3

REPORT INFORMATION
  Report Type: Spontaneous
  Country: FR (occurrence: FR)
  Receive Date: 20190710
  Receipt Date: 20190801
  Transmission Date: 20191004
  Serious: Yes (Other)
  Sender: FDA-Public Use
  Company Number: FR-AUROBINDO-AUR-APL-2019-039022

PATIENT

DRUGS (18)
  1. CINACALCET FILM COATED TABLET [Suspect]
     Active Substance: CINACALCET HYDROCHLORIDE
     Dosage: 60 MILLIGRAM, QD
     Route: 065
     Dates: start: 20060610
  2. SEVELAMER [Concomitant]
     Active Substance: SEVELAMER
     Indication: PRODUCT USED FOR UNKNOWN INDICATION
     Dosage: 3200 MILLIGRAM, QD
     Route: 065
     Dates: start: 20051207, end: 20070713
  3. SEVELAMER [Concomitant]
     Active Substance: SEVELAMER
     Dosage: 7200 MILLIGRAM, ONCE A DAY
     Route: 065
     Dates: start: 20060610
  4. CALCIUM CARBONATE. [Concomitant]
     Active Substance: CALCIUM CARBONATE
     Indication: PRODUCT USED FOR UNKNOWN INDICATION
     Dosage: 1.5 GRAM, ONCE A DAY
     Route: 065
     Dates: start: 20050615
  5. CINACALCET FILM COATED TABLET [Suspect]
     Active Substance: CINACALCET HYDROCHLORIDE
     Dosage: 90 MILLIGRAM, ONCE A DAY
     Route: 065
     Dates: start: 20060915
  6. SEVELAMER [Concomitant]
     Active Substance: SEVELAMER
     Dosage: 2400 MILLIGRAM, ONCE A DAY
     Route: 065
     Dates: start: 20071206
  7. CINACALCET FILM COATED TABLET [Suspect]
     Active Substance: CINACALCET HYDROCHLORIDE
     Indication: HYPERPARATHYROIDISM SECONDARY
     Dosage: 30 MILLIGRAM, ONCE A DAY
     Route: 065
     Dates: start: 20060307, end: 20070713
  8. CINACALCET FILM COATED TABLET [Suspect]
     Active Substance: CINACALCET HYDROCHLORIDE
     Dosage: 150 MILLIGRAM, ONCE A DAY
     Route: 065
     Dates: start: 20070524
  9. CINACALCET FILM COATED TABLET [Suspect]
     Active Substance: CINACALCET HYDROCHLORIDE
     Dosage: 120 MILLIGRAM, ONCE A DAY
     Route: 065
     Dates: start: 20061206
  10. ALFACALCIDOL [Concomitant]
     Active Substance: ALFACALCIDOL
     Dosage: 4 MICROGRAM, QD
     Route: 065
     Dates: start: 20071206
  11. CALCIUM CARBONATE. [Concomitant]
     Active Substance: CALCIUM CARBONATE
     Dosage: 12 GRAM, ONCE A DAY
     Route: 042
     Dates: start: 2007
  12. CALCIUM CARBONATE. [Concomitant]
     Active Substance: CALCIUM CARBONATE
     Dosage: 4.5 GRAM, ONCE A DAY
     Route: 065
     Dates: start: 20071206
  13. ALFACALCIDOL [Concomitant]
     Active Substance: ALFACALCIDOL
     Indication: PRODUCT USED FOR UNKNOWN INDICATION
     Dosage: 1 MICROGRAM, QD
     Route: 065
     Dates: start: 20050615
  14. ALFACALCIDOL [Concomitant]
     Active Substance: ALFACALCIDOL
     Dosage: 6 MICROGRAM, ONCE A DAY
     Route: 065
     Dates: start: 2007
  15. ALFACALCIDOL [Concomitant]
     Active Substance: ALFACALCIDOL
     Dosage: 2 MICROGRAM, ONCE A DAY
     Route: 065
     Dates: start: 201803
  16. CALCIUM CARBONATE. [Concomitant]
     Active Substance: CALCIUM CARBONATE
     Dosage: 2 GRAM, ONCE A DAY
     Route: 065
     Dates: start: 201803
  17. CALCIUM CARBONATE. [Concomitant]
     Active Substance: CALCIUM CARBONATE
     Dosage: 2 GRAM, ONCE A DAY
     Route: 065
     Dates: start: 201803
  18. SEVELAMER [Concomitant]
     Active Substance: SEVELAMER
     Dosage: 4800 MILLIGRAM, ONCE A DAY
     Route: 065
     Dates: start: 20060307

REACTIONS (5)
  - Renal transplant [Unknown]
  - Maternal exposure before pregnancy [Unknown]
  - Oncocytoma [Unknown]
  - Drug ineffective [Unknown]
  - Blood parathyroid hormone increased [Recovered/Resolved]

NARRATIVE: CASE EVENT DATE: 2008
